FAERS Safety Report 7727630-3 (Version None)
Quarter: 2011Q3

REPORT INFORMATION
  Report Type: 
  Country: None (occurrence: None)
  Receive Date: 20110902
  Receipt Date: 20110831
  Transmission Date: 20111222
  Serious: Yes (Other)
  Sender: FDA-Public Use
  Company Number: CHPA2011US11593

PATIENT
  Age: 57 Year
  Sex: Female

DRUGS (3)
  1. STEROIDS NOS [Concomitant]
  2. PHENYLEPHRINE HCL [Suspect]
     Indication: SEASONAL ALLERGY
  3. PHENYLEPHRINE HCL [Suspect]
     Indication: NASAL CONGESTION
     Dosage: 2 SPRAYS EACH NOSTRIL, 6 TIMES A DAY
     Dates: end: 20110801

REACTIONS (2)
  - DRUG DEPENDENCE [None]
  - INCORRECT DRUG ADMINISTRATION DURATION [None]
